FAERS Safety Report 11654618 (Version 6)
Quarter: 2018Q3

REPORT INFORMATION
  Report Type: Spontaneous
  Country: US (occurrence: US)
  Receive Date: 20151023
  Receipt Date: 20180802
  Transmission Date: 20181010
  Serious: Yes (Other)
  Sender: FDA-Public Use
  Company Number: US-PFIZER INC-2015192506

PATIENT
  Age: 57 Year
  Sex: Male

DRUGS (7)
  1. LYRICA [Suspect]
     Active Substance: PREGABALIN
     Dosage: 50 MG, 1 TAB IN PM FOR 1 WEEK
  2. XARELTO [Concomitant]
     Active Substance: RIVAROXABAN
     Dosage: UNK
  3. LYRICA [Suspect]
     Active Substance: PREGABALIN
     Dosage: 50 MG, 2 TAB IN AM, 3 TAB IN PM FOR 1 WEEK
  4. LYRICA [Suspect]
     Active Substance: PREGABALIN
     Dosage: 50 MG, 2 TAB IN AM, 2 TAB IN PM FOR 1 WEEK
  5. LYRICA [Suspect]
     Active Substance: PREGABALIN
     Indication: NEUROPATHY PERIPHERAL
     Dosage: 150 MG, TWICE DAILY (ONE CAPSULE BID)
     Route: 048
  6. LYRICA [Suspect]
     Active Substance: PREGABALIN
     Dosage: 50 MG, 1 TAB IN AM, 2 TAB IN PM FOR 1 WEEK
  7. LYRICA [Suspect]
     Active Substance: PREGABALIN
     Dosage: 50 MG, 1 TAB IN AM, 1 TAB IN PM FOR 1 WEEK

REACTIONS (6)
  - Visual impairment [Unknown]
  - Drug dispensing error [Unknown]
  - Eye disorder [Unknown]
  - Somnolence [Unknown]
  - Glaucoma [Unknown]
  - Loss of personal independence in daily activities [Unknown]
